FAERS Safety Report 15808319 (Version 3)
Quarter: 2019Q4

REPORT INFORMATION
  Report Type: Report from Study
  Country: US (occurrence: US)
  Receive Date: 20190110
  Receipt Date: 20191011
  Transmission Date: 20200122
  Serious: Yes (Hospitalization)
  Sender: FDA-Public Use
  Company Number: US-GILEAD-2018-0378690

PATIENT
  Age: 65 Year
  Sex: Female
  Weight: 56.4 kg

DRUGS (77)
  1. IPRATROPIUM BROMIDE. [Concomitant]
     Active Substance: IPRATROPIUM BROMIDE
     Dosage: 500,UG,AS NECESSARY
     Route: 050
     Dates: start: 20181202, end: 20181206
  2. SODIUM CHLORIDE. [Concomitant]
     Active Substance: SODIUM CHLORIDE
  3. ALBUTEROL [SALBUTAMOL] [Concomitant]
     Active Substance: ALBUTEROL
  4. DELTASONE [Concomitant]
     Active Substance: PREDNISONE
  5. ONDANSETRON [Concomitant]
     Active Substance: ONDANSETRON
     Dosage: 4,MG,ONCE
     Route: 042
     Dates: start: 20190314, end: 20190314
  6. FEXOFENADINE [Concomitant]
     Active Substance: FEXOFENADINE HYDROCHLORIDE
     Dosage: 180,MG,DAILY
     Route: 048
     Dates: start: 20190103, end: 20190106
  7. POTASSIUM CHLORIDE. [Concomitant]
     Active Substance: POTASSIUM CHLORIDE
     Dosage: 20-80,OTHER,AS NECESSARY
     Route: 048
     Dates: start: 20190103, end: 20190106
  8. ENOXAPARIN [Concomitant]
     Active Substance: ENOXAPARIN
     Dosage: 40,MG,DAILY
     Route: 058
     Dates: start: 20190103, end: 20190103
  9. LEVETIRACETAM. [Concomitant]
     Active Substance: LEVETIRACETAM
     Dosage: 750,MG,TWICE DAILY
     Route: 048
     Dates: start: 20190103, end: 20190105
  10. CYCLOPHOSPHAMIDE. [Suspect]
     Active Substance: CYCLOPHOSPHAMIDE
     Indication: BONE MARROW CONDITIONING REGIMEN
     Dosage: 500 MG/M2, QD
     Route: 042
     Dates: start: 20181130, end: 20181202
  11. CALCIUM CARBONATE WITH D3 [Concomitant]
     Active Substance: CALCIUM CARBONATE\CHOLECALCIFEROL
  12. COLACE [Concomitant]
     Active Substance: DOCUSATE SODIUM
  13. FLOVENT [Concomitant]
     Active Substance: FLUTICASONE PROPIONATE
  14. ZOFRAN [Concomitant]
     Active Substance: ONDANSETRON HYDROCHLORIDE
  15. DOCUSATE SODIUM. [Concomitant]
     Active Substance: DOCUSATE SODIUM
     Dosage: 100,MG,AS NECESSARY
     Route: 048
     Dates: start: 20181203, end: 20181215
  16. ONDANSETRON [Concomitant]
     Active Substance: ONDANSETRON
     Dosage: 4,MG,ONCE
     Route: 042
     Dates: start: 20190228, end: 20190228
  17. GUAIFENESIN. [Concomitant]
     Active Substance: GUAIFENESIN
     Dosage: 200,MG,AS NECESSARY
     Route: 048
     Dates: start: 20181202, end: 20181219
  18. LEVETIRACETAM. [Concomitant]
     Active Substance: LEVETIRACETAM
     Dosage: 750,MG,TWICE DAILY
     Route: 048
     Dates: start: 20181204, end: 20181205
  19. ACYCLOVIR [ACICLOVIR] [Concomitant]
     Active Substance: ACYCLOVIR
     Dosage: 400,MG,THREE TIMES DAILY
     Route: 048
     Dates: start: 20181205, end: 20181219
  20. LIDOCAINE. [Concomitant]
     Active Substance: LIDOCAINE
     Dosage: 1,OTHER,AS NECESSARY
     Route: 062
     Dates: start: 20181207, end: 20181209
  21. SODIUM CHLORIDE 0.9% [Concomitant]
     Active Substance: SODIUM CHLORIDE
     Dosage: 100,OTHER,CONTINUOUS
     Route: 042
     Dates: start: 20181213, end: 20181214
  22. LEVAQUIN [Concomitant]
     Active Substance: LEVOFLOXACIN
  23. LEVOTHYROXINE. [Concomitant]
     Active Substance: LEVOTHYROXINE
     Dosage: 50,UG,DAILY
     Route: 048
     Dates: start: 20180514
  24. TOPROL XL [Concomitant]
     Active Substance: METOPROLOL SUCCINATE
  25. CALCIUM CARBONATE. [Concomitant]
     Active Substance: CALCIUM CARBONATE
     Dosage: 600,MG,DAILY
     Route: 048
     Dates: start: 20180514
  26. ONDANSETRON [Concomitant]
     Active Substance: ONDANSETRON
     Dosage: 8,MG,AS NECESSARY
     Route: 048
     Dates: start: 20180604
  27. LOPERAMIDE [Concomitant]
     Active Substance: LOPERAMIDE
     Dosage: 2-4,MG,AS NECESSARY
     Route: 048
     Dates: start: 20181211, end: 20181219
  28. MUCOMYST [ACETYLCYSTEINE] [Concomitant]
  29. ROBITUSSIN (GUAIFENESIN) [Concomitant]
     Active Substance: GUAIFENESIN
  30. COMPAZINE [Concomitant]
     Active Substance: PROCHLORPERAZINE MALEATE
  31. VITAMINS NOS [Concomitant]
     Active Substance: VITAMINS
  32. CRANBERRY [VACCINIUM MACROCARPON] [Concomitant]
  33. DOCUSATE SODIUM. [Concomitant]
     Active Substance: DOCUSATE SODIUM
     Dosage: 100,MG,AS NECESSARY
     Route: 048
     Dates: start: 20180514
  34. DOCUSATE SODIUM. [Concomitant]
     Active Substance: DOCUSATE SODIUM
     Dosage: 100,MG,TWICE DAILY
     Route: 048
     Dates: start: 20190103, end: 20190103
  35. LORAZEPAM. [Concomitant]
     Active Substance: LORAZEPAM
     Dosage: 0.25,MG,AS NECESSARY
     Route: 048
     Dates: start: 20181202, end: 20181203
  36. ALLOPURINOL. [Concomitant]
     Active Substance: ALLOPURINOL
     Dosage: 300,MG,DAILY
     Route: 048
     Dates: start: 20181203, end: 20181205
  37. SULFAMETHOXAZOLE;TRIMETHOPRIM [Concomitant]
     Active Substance: SULFAMETHOXAZOLE\TRIMETHOPRIM
     Dosage: 400-80,MG,DAILY
     Route: 048
     Dates: start: 20181204, end: 20181204
  38. DIPHENHYDRAMINE. [Concomitant]
     Active Substance: DIPHENHYDRAMINE
     Dosage: 25-50,MG,AS NECESSARY
     Route: 042
     Dates: start: 20181205, end: 20181206
  39. RED BLOOD CELLS [Concomitant]
     Active Substance: HUMAN RED BLOOD CELL
     Dosage: 300,ML,ONCE
     Route: 042
     Dates: start: 20181210, end: 20181210
  40. OXYCODONE [Concomitant]
     Active Substance: OXYCODONE
     Dosage: 5,MG,AS NECESSARY
     Route: 048
     Dates: start: 20181213, end: 20181219
  41. FLUDARABINE [Suspect]
     Active Substance: FLUDARABINE PHOSPHATE
     Indication: BONE MARROW CONDITIONING REGIMEN
     Dosage: 30 MG/M2, QD
     Route: 042
     Dates: start: 20181130, end: 20181202
  42. ZYLOPRIM [Concomitant]
     Active Substance: ALLOPURINOL
  43. LOVENOX [Concomitant]
     Active Substance: ENOXAPARIN SODIUM
  44. ALLEGRA [Concomitant]
     Active Substance: FEXOFENADINE HYDROCHLORIDE
  45. MAGNESIUM OXIDE. [Concomitant]
     Active Substance: MAGNESIUM OXIDE
     Dosage: 200,MG,DAILY
     Route: 048
     Dates: start: 20180514
  46. FEXOFENADINE [Concomitant]
     Active Substance: FEXOFENADINE HYDROCHLORIDE
     Dosage: 180,MG,DAILY
     Route: 048
     Dates: start: 20180925
  47. ACETYLCYSTEINE. [Concomitant]
     Active Substance: ACETYLCYSTEINE
     Dosage: 4,ML,FOUR TIMES DAILY
     Route: 055
     Dates: start: 20190103, end: 20190106
  48. METOPROLOL TARTRATE. [Concomitant]
     Active Substance: METOPROLOL TARTRATE
     Dosage: 6.25,MG,FOUR TIMES DAILY
     Route: 048
     Dates: start: 20181205, end: 20181219
  49. SODIUM CHLORIDE IV [Concomitant]
     Active Substance: SODIUM CHLORIDE
     Dosage: 10,OTHER,CONTINUOUS
     Route: 042
     Dates: start: 20181205, end: 20181205
  50. ACYCLOVIR [ACICLOVIR] [Concomitant]
     Active Substance: ACYCLOVIR
     Dosage: 400,MG,THREE TIMES DAILY
     Route: 048
     Dates: start: 20190103, end: 20190106
  51. NYSTATIN. [Concomitant]
     Active Substance: NYSTATIN
     Dosage: 500000,OTHER,FOUR TIMES DAILY
     Route: 050
     Dates: start: 20181206, end: 20181219
  52. AXICABTAGENE CILOLEUCEL [Suspect]
     Active Substance: AXICABTAGENE CILOLEUCEL
     Indication: DIFFUSE LARGE B-CELL LYMPHOMA
     Dosage: 68 ML, ONCE
     Route: 042
     Dates: start: 20181205, end: 20181205
  53. ATIVAN [Concomitant]
     Active Substance: LORAZEPAM
  54. PREVNAR 13 [Concomitant]
     Active Substance: PNEUMOCOCCAL 13-VALENT CONJUGATE VACCINE
  55. PROCHLORPERAZINE. [Concomitant]
     Active Substance: PROCHLORPERAZINE
     Dosage: 10,MG,AS NECESSARY
     Route: 048
     Dates: start: 20180604
  56. ENOXAPARIN [Concomitant]
     Active Substance: ENOXAPARIN
     Dosage: 40,MG,DAILY
     Route: 058
     Dates: start: 20181203, end: 20181219
  57. LEVOFLOXACIN. [Concomitant]
     Active Substance: LEVOFLOXACIN
     Dosage: 500,MG,DAILY
     Route: 048
     Dates: start: 20181203, end: 20181205
  58. SALIVA SUBSTITUTE [Concomitant]
     Active Substance: CARBOXYMETHYLCELLULOSE SODIUM\DEVICE\SORBINICATE
     Dosage: 15,ML,AS NECESSARY
     Route: 050
     Dates: start: 20181212, end: 20181219
  59. HIBICLENS [Concomitant]
     Active Substance: CHLORHEXIDINE GLUCONATE
  60. MAG-OX [Concomitant]
     Active Substance: MAGNESIUM OXIDE
  61. DECADRON [Concomitant]
     Active Substance: DEXAMETHASONE
     Dosage: 40 MG, QD
  62. PROCHLORPERAZINE. [Concomitant]
     Active Substance: PROCHLORPERAZINE
     Dosage: 10,MG,AS NECESSARY
     Route: 048
     Dates: start: 20181202, end: 20181219
  63. FLUTICASONE. [Concomitant]
     Active Substance: FLUTICASONE
     Dosage: 1,OTHER,TWICE DAILY
     Route: 055
     Dates: start: 20180925
  64. ACETYLCYSTEINE. [Concomitant]
     Active Substance: ACETYLCYSTEINE
     Dosage: 4,ML,FOUR TIMES DAILY
     Route: 050
     Dates: start: 20181202, end: 20181219
  65. CHLORHEXIDINE GLUCONATE. [Concomitant]
     Active Substance: CHLORHEXIDINE GLUCONATE
     Dosage: UNKNOWN,OTHER,DAILY
     Route: 061
     Dates: start: 20181202, end: 20190106
  66. SENNA [SENNOSIDE A+B] [Concomitant]
     Dosage: 1,OTHER,AS NECESSARY
     Route: 048
     Dates: start: 20181203, end: 20181219
  67. MESNA. [Suspect]
     Active Substance: MESNA
     Indication: PROPHYLAXIS
     Dosage: 125 MG/M2, BID
     Route: 042
     Dates: start: 20181130, end: 20181202
  68. ALBUTEROL [SALBUTAMOL] [Concomitant]
     Active Substance: ALBUTEROL
     Dosage: 2,OTHER,AS NECESSARY
     Route: 055
     Dates: start: 20180514
  69. METOPROLOL SUCCINATE. [Concomitant]
     Active Substance: METOPROLOL SUCCINATE
     Dosage: 25,MG,DAILY
     Route: 048
     Dates: start: 20180514
  70. ONDANSETRON [Concomitant]
     Active Substance: ONDANSETRON
     Dosage: 8,MG,AS NECESSARY
     Route: 048
     Dates: start: 20181202, end: 20181219
  71. DEXAMETHASONE. [Concomitant]
     Active Substance: DEXAMETHASONE
     Dosage: 30,MG,DAILY
     Route: 048
     Dates: start: 20181101
  72. POTASSIUM CHLORIDE. [Concomitant]
     Active Substance: POTASSIUM CHLORIDE
     Dosage: 20-80,OTHER,AS NECESSARY
     Route: 048
     Dates: start: 20181202, end: 20181203
  73. CALCIUM CARBONATE/VITAMIN D3 [Concomitant]
     Active Substance: CALCIUM CARBONATE\CHOLECALCIFEROL
     Dosage: 1,OTHER,DAILY
     Route: 048
     Dates: start: 20181203, end: 20181219
  74. POLYETHYLENE GLYCOL [Concomitant]
     Active Substance: POLYETHYLENE GLYCOLS
     Dosage: 17,G,AS NECESSARY
     Route: 048
     Dates: start: 20181203, end: 20181216
  75. METOPROLOL TARTRATE. [Concomitant]
     Active Substance: METOPROLOL TARTRATE
     Dosage: 6.25,MG,FOUR TIMES DAILY
     Route: 048
     Dates: start: 20190103, end: 20190106
  76. TOCILIZUMAB. [Concomitant]
     Active Substance: TOCILIZUMAB
     Dosage: 430,MG,ONCE
     Route: 042
     Dates: start: 20181211, end: 20181211
  77. OXYGEN. [Concomitant]
     Active Substance: OXYGEN
     Dosage: 2,L,ONCE
     Route: 055
     Dates: start: 20181211, end: 20181211

REACTIONS (2)
  - Pyrexia [Recovered/Resolved]
  - Pneumonia [Unknown]

NARRATIVE: CASE EVENT DATE: 20181202
